FAERS Safety Report 5718851-X (Version None)
Quarter: 2008Q2

REPORT INFORMATION
  Report Type: 
  Country: None (occurrence: None)
  Receive Date: 20080423
  Receipt Date: 20080411
  Transmission Date: 20081010
  Serious: Yes (Hospitalization)
  Sender: FDA-Public Use
  Company Number: RENA-1000056

PATIENT
  Age: 79 Year
  Sex: Female
  Weight: 63 kg

DRUGS (5)
  1. RENAGEL [Suspect]
     Indication: HYPERPHOSPHATAEMIA
     Dosage: 800 MG, TID, ORAL
     Route: 048
     Dates: start: 20080109, end: 20080203
  2. FERROUS SULPHATE (FERROUS SULFATE) [Concomitant]
  3. VALSARTAN [Concomitant]
  4. ACEBUTOLOL [Concomitant]
  5. ACETYLSALICYLATE LYSINE (ACETYLSALICYLATE LYSINE) [Concomitant]

REACTIONS (5)
  - DRUG HYPERSENSITIVITY [None]
  - EOSINOPHILIA [None]
  - PRURITUS [None]
  - RASH PAPULAR [None]
  - SKIN EXFOLIATION [None]
